FAERS Safety Report 14600700 (Version 2)
Quarter: 2018Q2

REPORT INFORMATION
  Report Type: Report from Study
  Country: DE (occurrence: DE)
  Receive Date: 20180305
  Receipt Date: 20180403
  Transmission Date: 20180711
  Serious: Yes (Hospitalization, Other)
  Sender: FDA-Public Use
  Company Number: DE-ELI_LILLY_AND_COMPANY-DE201802009788

PATIENT
  Age: 59 Year
  Sex: Male
  Weight: 80 kg

DRUGS (11)
  1. CISPLATIN. [Suspect]
     Active Substance: CISPLATIN
     Indication: NON-SMALL CELL LUNG CANCER
     Dosage: 75 MG/M2, UNK
     Route: 042
     Dates: start: 20140109, end: 20140109
  2. AVASTIN [Suspect]
     Active Substance: BEVACIZUMAB
     Indication: NON-SMALL CELL LUNG CANCER
     Dosage: 586.5 MG, CYCLICAL
     Route: 042
     Dates: start: 20140109, end: 20140109
  3. PANTOZOL [Concomitant]
     Active Substance: PANTOPRAZOLE SODIUM
     Indication: PROPHYLAXIS
     Dosage: 40 MG, DAILY
     Route: 048
  4. SEROQUEL [Concomitant]
     Active Substance: QUETIAPINE FUMARATE
     Dosage: 25 MG, UNK
     Route: 065
  5. HALOPERIDOL. [Concomitant]
     Active Substance: HALOPERIDOL
     Indication: PARKINSON^S DISEASE
     Dosage: 6 MG, DAILY
     Route: 048
  6. FOLIC ACID. [Concomitant]
     Active Substance: FOLIC ACID
     Indication: NON-SMALL CELL LUNG CANCER
     Dosage: 0.4 MG, DAILY
     Route: 048
     Dates: start: 20140106
  7. FOLINIC ACID [Concomitant]
     Active Substance: LEUCOVORIN
     Indication: NON-SMALL CELL LUNG CANCER
     Dosage: .4 MG, DAILY
     Route: 048
     Dates: start: 20140106
  8. PEMETREXED. [Suspect]
     Active Substance: PEMETREXED
     Indication: NON-SMALL CELL LUNG CANCER
     Dosage: 650 MG, CYCLICAL
     Route: 042
     Dates: start: 20140109
  9. PRAMIPEXOLE. [Concomitant]
     Active Substance: PRAMIPEXOLE
     Indication: PARKINSON^S DISEASE
     Dosage: 1.4 MG, DAILY
     Route: 048
     Dates: start: 20140106
  10. AZILECT [Concomitant]
     Active Substance: RASAGILINE MESYLATE
     Indication: PARKINSON^S DISEASE
     Dosage: 1 MG, DAILY
     Route: 048
     Dates: start: 20140106
  11. DESAMETASONE [Concomitant]
     Active Substance: DEXAMETHASONE
     Indication: NON-SMALL CELL LUNG CANCER
     Dosage: 12 MG, DAILY
     Route: 048
     Dates: start: 20140108

REACTIONS (3)
  - Thrombocytopenia [Recovered/Resolved]
  - Leukopenia [Recovered/Resolved]
  - Delirium [Recovered/Resolved]

NARRATIVE: CASE EVENT DATE: 20140118
